FAERS Safety Report 14150246 (Version 1)
Quarter: 2017Q4

REPORT INFORMATION
  Report Type: Spontaneous
  Country: FR (occurrence: FR)
  Receive Date: 20171101
  Receipt Date: 20171101
  Transmission Date: 20180321
  Serious: Yes (Hospitalization, Other)
  Sender: FDA-Public Use
  Company Number: FR-ELI_LILLY_AND_COMPANY-FR201710008660

PATIENT
  Age: 61 Year
  Sex: Female

DRUGS (7)
  1. OPDIVO [Suspect]
     Active Substance: NIVOLUMAB
     Indication: LUNG ADENOCARCINOMA
     Dosage: UNK UNK, UNKNOWN
     Route: 051
     Dates: start: 201704, end: 201708
  2. ALIMTA [Suspect]
     Active Substance: PEMETREXED DISODIUM
     Indication: LUNG ADENOCARCINOMA STAGE IV
     Dosage: UNK UNK, UNKNOWN
     Route: 065
  3. ALIMTA [Suspect]
     Active Substance: PEMETREXED DISODIUM
     Dosage: UNK UNK, UNKNOWN
     Route: 051
     Dates: start: 20170921
  4. CARBOPLATIN. [Suspect]
     Active Substance: CARBOPLATIN
     Indication: LUNG ADENOCARCINOMA STAGE IV
     Dosage: UNK UNK, UNKNOWN
     Route: 051
     Dates: start: 20170921
  5. IOMERON [Suspect]
     Active Substance: IOMEPROL
     Indication: SCAN
     Dosage: UNK UNK, UNKNOWN
     Route: 065
  6. AVASTIN [Concomitant]
     Active Substance: BEVACIZUMAB
     Indication: LUNG ADENOCARCINOMA STAGE IV
     Dosage: UNK UNK, UNKNOWN
     Route: 065
  7. GILOTRIF [Concomitant]
     Active Substance: AFATINIB
     Indication: LUNG ADENOCARCINOMA STAGE IV
     Dosage: UNK, UNKNOWN
     Route: 065
     Dates: start: 201504, end: 201703

REACTIONS (12)
  - Drug reaction with eosinophilia and systemic symptoms [Recovering/Resolving]
  - Platelet count decreased [Unknown]
  - Gamma-glutamyltransferase increased [Unknown]
  - Hypertriglyceridaemia [Unknown]
  - Parvovirus B19 test positive [Unknown]
  - Toxic skin eruption [Not Recovered/Not Resolved]
  - Off label use [Unknown]
  - Epstein-Barr virus test positive [Unknown]
  - Neutrophil count decreased [Unknown]
  - Hepatocellular injury [Recovering/Resolving]
  - Blood sodium decreased [Unknown]
  - Hyperferritinaemia [Unknown]

NARRATIVE: CASE EVENT DATE: 20170928
